FAERS Safety Report 16506653 (Version 1)
Quarter: 2019Q3

REPORT INFORMATION
  Report Type: Spontaneous
  Country: CN (occurrence: CN)
  Receive Date: 20190701
  Receipt Date: 20190701
  Transmission Date: 20191004
  Serious: Yes (Other)
  Sender: FDA-Public Use
  Company Number: CN-ASTRAZENECA-2019SE89413

PATIENT
  Age: 74 Year
  Sex: Female

DRUGS (2)
  1. TAGRISSO [Concomitant]
     Active Substance: OSIMERTINIB
  2. IRESSA [Suspect]
     Active Substance: GEFITINIB
     Indication: NON-SMALL CELL LUNG CANCER
     Route: 048
     Dates: start: 201808, end: 201905

REACTIONS (6)
  - Drug resistance [Unknown]
  - Back pain [Unknown]
  - Pain in extremity [Unknown]
  - Malignant neoplasm progression [Recovering/Resolving]
  - Abdominal pain [Unknown]
  - Constipation [Unknown]
